FAERS Safety Report 4501763-7 (Version None)
Quarter: 2004Q4

REPORT INFORMATION
  Report Type: 
  Country: None (occurrence: None)
  Receive Date: 20040928
  Receipt Date: 20040630
  Transmission Date: 20050328
  Serious: No
  Sender: FDA-Public Use
  Company Number: 03P-163-0245366-00

PATIENT
  Age: 51 Year
  Sex: Female
  Weight: 54.4316 kg

DRUGS (3)
  1. HUMIRA [Suspect]
     Indication: PSORIATIC ARTHROPATHY
     Dosage: 40 MG, SUBCUTANEOUS
     Route: 058
     Dates: start: 20031221
  2. VICODIN [Concomitant]
  3. MODAFINIL [Concomitant]

REACTIONS (1)
  - INJECTION SITE BURNING [None]
